FAERS Safety Report 5968479-1 (Version None)
Quarter: 2008Q4

REPORT INFORMATION
  Report Type: 
  Country: None (occurrence: None)
  Receive Date: 20081126
  Receipt Date: 20081103
  Transmission Date: 20090506
  Serious: Yes (Other)
  Sender: FDA-Public Use
  Company Number: AU-ABBOTT-08P-008-0485343-00

PATIENT
  Age: 66 Year
  Sex: Female

DRUGS (7)
  1. FENOFIBRATE [Suspect]
     Indication: METABOLIC DISORDER
     Route: 048
     Dates: end: 20080614
  2. PARACETAMOL [Suspect]
     Indication: DRUG USE FOR UNKNOWN INDICATION
     Route: 048
  3. ALPHA-TOCOPHEROL CAP [Concomitant]
     Indication: DRUG USE FOR UNKNOWN INDICATION
  4. CALTRATE [Concomitant]
     Indication: DRUG USE FOR UNKNOWN INDICATION
  5. COLECALCIFEROL [Concomitant]
     Indication: DRUG USE FOR UNKNOWN INDICATION
  6. TELMISARTAN [Concomitant]
     Indication: DRUG USE FOR UNKNOWN INDICATION
  7. XALATAN [Concomitant]
     Indication: DRUG USE FOR UNKNOWN INDICATION

REACTIONS (1)
  - LIVER DISORDER [None]
